FAERS Safety Report 6907880-6 (Version None)
Quarter: 2010Q3

REPORT INFORMATION
  Report Type: 
  Country: None (occurrence: None)
  Receive Date: 20100805
  Receipt Date: 20100722
  Transmission Date: 20110219
  Serious: Yes (Other)
  Sender: FDA-Public Use
  Company Number: PHFR2010GB01534

PATIENT
  Sex: Male

DRUGS (1)
  1. CLOZARIL [Suspect]
     Indication: SCHIZOPHRENIA
     Dosage: UNK,UNK

REACTIONS (4)
  - INTESTINAL RESECTION [None]
  - NAUSEA [None]
  - TUMOUR EXCISION [None]
  - VOMITING [None]
